FAERS Safety Report 24010433 (Version 1)
Quarter: 2024Q2

REPORT INFORMATION
  Report Type: Spontaneous
  Country: JP (occurrence: None)
  Receive Date: 20240625
  Receipt Date: 20240625
  Transmission Date: 20240716
  Serious: Yes (Death, Other)
  Sender: FDA-Public Use
  Company Number: 2024A112439

PATIENT
  Age: 86 Year
  Sex: Male

DRUGS (2)
  1. ONDEXXYA [Suspect]
     Active Substance: ANDEXANET ALFA
     Dosage: DOSE UNKNOWN880.0MG UNKNOWN
     Route: 042
     Dates: start: 20231029
  2. EDOXABAN TOSYLATE [Concomitant]
     Active Substance: EDOXABAN TOSYLATE
     Dosage: DOSE UNKNOWN

REACTIONS (3)
  - Sepsis [Fatal]
  - Cerebral infarction [Unknown]
  - Haematochezia [Unknown]

NARRATIVE: CASE EVENT DATE: 20231105
